FAERS Safety Report 17438704 (Version 4)
Quarter: 2021Q2

REPORT INFORMATION
  Report Type: Report from Study
  Country: DE (occurrence: DE)
  Receive Date: 20200220
  Receipt Date: 20210416
  Transmission Date: 20210716
  Serious: Yes (Life-Threatening, Other)
  Sender: FDA-Public Use
  Company Number: DE-BRISTOL-MYERS SQUIBB COMPANY-BMS-2020-014090

PATIENT
  Age: 71 Year
  Sex: Male
  Weight: 69 kg

DRUGS (10)
  1. IPILIMUMAB [Suspect]
     Active Substance: IPILIMUMAB
     Indication: ADENOCARCINOMA GASTRIC
  2. TRASTUZUMAB. [Suspect]
     Active Substance: TRASTUZUMAB
     Indication: OESOPHAGEAL ADENOCARCINOMA
     Dosage: 320 MILLIGRAM
     Route: 065
     Dates: start: 20191023, end: 20200212
  3. TRASTUZUMAB. [Suspect]
     Active Substance: TRASTUZUMAB
     Indication: ADENOCARCINOMA GASTRIC
  4. NIVOLUMAB [Suspect]
     Active Substance: NIVOLUMAB
     Indication: ADENOCARCINOMA GASTRIC
  5. KALIUM?R [Concomitant]
     Indication: ELECTROLYTE SUBSTITUTION THERAPY
     Dosage: 10 MILLIMOLE;1?1?1?1
     Route: 065
     Dates: start: 201905, end: 20200214
  6. NIVOLUMAB [Suspect]
     Active Substance: NIVOLUMAB
     Indication: OESOPHAGEAL ADENOCARCINOMA
     Dosage: 240 MILLIGRAM
     Dates: start: 20191023, end: 20200212
  7. MCP [Concomitant]
     Active Substance: METOCLOPRAMIDE HYDROCHLORIDE
     Indication: PROPHYLAXIS OF NAUSEA AND VOMITING
     Dosage: 10 MILLIGRAM, TID
     Route: 065
     Dates: start: 201909
  8. IPILIMUMAB [Suspect]
     Active Substance: IPILIMUMAB
     Indication: OESOPHAGEAL ADENOCARCINOMA
     Dosage: 240 MILLIGRAM
     Route: 065
     Dates: start: 20191023, end: 20191223
  9. PANTOPRAZOL [PANTOPRAZOLE] [Concomitant]
     Active Substance: PANTOPRAZOLE
     Indication: PRODUCT USED FOR UNKNOWN INDICATION
     Dosage: 40 GRAM, BID
     Route: 065
     Dates: start: 201905
  10. CPS [Concomitant]
     Indication: PROPHYLAXIS
     Dosage: UNK; 1?1?1
     Dates: start: 20200214

REACTIONS (1)
  - Acute kidney injury [Recovered/Resolved with Sequelae]

NARRATIVE: CASE EVENT DATE: 20200210
